FAERS Safety Report 20245375 (Version 1)
Quarter: 2021Q4

REPORT INFORMATION
  Report Type: Spontaneous
  Country: FR (occurrence: FR)
  Receive Date: 20211229
  Receipt Date: 20211229
  Transmission Date: 20220303
  Serious: Yes (Congenital Anomaly, Other)
  Sender: FDA-Public Use
  Company Number: FR-ABBVIE-21K-056-4213754-00

PATIENT
  Sex: Male

DRUGS (1)
  1. VALPROATE SODIUM [Suspect]
     Active Substance: VALPROATE SODIUM
     Indication: Maternal exposure timing unspecified
     Route: 064

REACTIONS (18)
  - Psychomotor retardation [Unknown]
  - Behaviour disorder [Unknown]
  - Speech disorder developmental [Unknown]
  - Inguinal hernia [Unknown]
  - Epilepsy [Unknown]
  - Hypotonia [Unknown]
  - Oropharyngeal discomfort [Unknown]
  - Gastrooesophageal reflux disease [Unknown]
  - Ocular discomfort [Unknown]
  - Ear disorder [Unknown]
  - Nasal disorder [Unknown]
  - Personal relationship issue [Unknown]
  - Fatigue [Unknown]
  - Learning disorder [Unknown]
  - Disturbance in attention [Unknown]
  - Nystagmus [Unknown]
  - Autism spectrum disorder [Unknown]
  - Foetal exposure during pregnancy [Unknown]
